FAERS Safety Report 6941061-5 (Version None)
Quarter: 2010Q3

REPORT INFORMATION
  Report Type: 
  Country: None (occurrence: None)
  Receive Date: 20100825
  Receipt Date: 20100824
  Transmission Date: 20110219
  Serious: Yes (Hospitalization)
  Sender: FDA-Public Use
  Company Number: US-BRISTOL-MYERS SQUIBB COMPANY-15233729

PATIENT
  Age: 6 Decade
  Sex: Female

DRUGS (9)
  1. ONGLYZA [Suspect]
     Indication: DIABETES MELLITUS
     Dates: start: 20100401, end: 20100729
  2. IMURAN [Suspect]
  3. HYDROCHLOROTHIAZIDE [Suspect]
  4. LISINOPRIL [Concomitant]
  5. NASONEX [Concomitant]
  6. PROCARDIA [Concomitant]
  7. CARAFATE [Concomitant]
  8. AMBIEN [Concomitant]
  9. PRILOSEC [Concomitant]

REACTIONS (3)
  - DEHYDRATION [None]
  - PANCREATITIS [None]
  - RENAL FAILURE ACUTE [None]
